FAERS Safety Report 19819825 (Version 1)
Quarter: 2021Q3

REPORT INFORMATION
  Report Type: Report from Study
  Country: US (occurrence: US)
  Receive Date: 20210913
  Receipt Date: 20210913
  Transmission Date: 20211014
  Serious: No
  Sender: FDA-Public Use
  Company Number: NVSC2021US206115

PATIENT
  Sex: Female

DRUGS (1)
  1. ENTRESTO [Suspect]
     Active Substance: SACUBITRIL\VALSARTAN
     Indication: HEART RATE
     Dosage: UNK UNK, QD
     Route: 065
     Dates: start: 202108

REACTIONS (3)
  - Product use in unapproved indication [Unknown]
  - Heart rate decreased [Recovering/Resolving]
  - Inappropriate schedule of product administration [Unknown]
